FAERS Safety Report 6727295-3 (Version None)
Quarter: 2010Q2

REPORT INFORMATION
  Report Type: 
  Country: None (occurrence: None)
  Receive Date: 20100517
  Receipt Date: 20100510
  Transmission Date: 20101027
  Serious: Yes (Hospitalization)
  Sender: FDA-Public Use
  Company Number: US-JNJFOC-20100504167

PATIENT
  Sex: Female
  Weight: 110.68 kg

DRUGS (3)
  1. DURAGESIC-100 [Suspect]
     Indication: BACK PAIN
     Route: 062
  2. BENAZEPRIL HYDROCHLORIDE [Concomitant]
     Indication: HYPERTENSION
     Route: 048
  3. PREVACID [Concomitant]
     Indication: NAUSEA
     Route: 048

REACTIONS (6)
  - BLINDNESS [None]
  - CEREBROVASCULAR ACCIDENT [None]
  - FALL [None]
  - GASTROINTESTINAL DISORDER [None]
  - WEIGHT DECREASED [None]
  - WRONG TECHNIQUE IN DRUG USAGE PROCESS [None]
